FAERS Safety Report 20019037 (Version 1)
Quarter: 2021Q4

REPORT INFORMATION
  Report Type: Report from Study
  Country: DE (occurrence: DE)
  Receive Date: 20211101
  Receipt Date: 20211101
  Transmission Date: 20220303
  Serious: Yes (Death)
  Sender: FDA-Public Use
  Company Number: DE-PFIZER INC-202101443852

PATIENT
  Sex: Female

DRUGS (5)
  1. UNSPECIFIED INGREDIENT [Suspect]
     Active Substance: UNSPECIFIED INGREDIENT
     Dosage: NO DOSE GIVEN
  2. METHOTREXATE SODIUM [Suspect]
     Active Substance: METHOTREXATE SODIUM
     Dosage: 15 MG
     Dates: end: 202101
  3. ETANERCEPT [Suspect]
     Active Substance: ETANERCEPT
     Dosage: 50 MG, ONCE WEEKLY
     Dates: end: 20210131
  4. PREDNISOLONE [Concomitant]
     Active Substance: PREDNISOLONE
  5. FENTANYL [Concomitant]
     Active Substance: FENTANYL
     Dosage: EVERY 3 DAYS
     Dates: start: 201812

REACTIONS (1)
  - Death [Fatal]

NARRATIVE: CASE EVENT DATE: 20210131
